FAERS Safety Report 6742592-3 (Version None)
Quarter: 2010Q2

REPORT INFORMATION
  Report Type: 
  Country: None (occurrence: None)
  Receive Date: 20100526
  Receipt Date: 20100519
  Transmission Date: 20101027
  Serious: Yes (Other)
  Sender: FDA-Public Use
  Company Number: US-CVT-100116

PATIENT

DRUGS (5)
  1. RANEXA [Suspect]
     Indication: ANGINA PECTORIS
     Dosage: 1000 MG, BID
     Dates: start: 20091103
  2. RANEXA [Suspect]
     Dosage: 500 MG, BID
     Dates: start: 20090924
  3. COREG [Concomitant]
  4. LISINOPRIL                         /00894001/ [Concomitant]
  5. TRICOR [Concomitant]

REACTIONS (5)
  - ATRIOVENTRICULAR BLOCK FIRST DEGREE [None]
  - DIZZINESS [None]
  - ELECTROCARDIOGRAM QT INTERVAL ABNORMAL [None]
  - PRESYNCOPE [None]
  - SICK SINUS SYNDROME [None]
